FAERS Safety Report 10524447 (Version 1)
Quarter: 2014Q4

REPORT INFORMATION
  Report Type: Spontaneous
  Country: US (occurrence: None)
  Receive Date: 20141015
  Receipt Date: 20141015
  Transmission Date: 20150528
  Serious: Yes (Hospitalization)
  Sender: FDA-Public Use
  Company Number: None

PATIENT
  Age: 33 Year
  Sex: Female
  Weight: 57.3 kg

DRUGS (2)
  1. MESALAMINE. [Suspect]
     Active Substance: MESALAMINE
     Indication: PAIN
     Route: 048
     Dates: start: 20140612, end: 20140628
  2. MESALAMINE. [Suspect]
     Active Substance: MESALAMINE
     Indication: PANCREATITIS
     Route: 048
     Dates: start: 20140612, end: 20140628

REACTIONS (2)
  - Pancreatitis [None]
  - Abdominal pain [None]

NARRATIVE: CASE EVENT DATE: 20140702
